FAERS Safety Report 18962345 (Version 1)
Quarter: 2021Q1

REPORT INFORMATION
  Report Type: Spontaneous
  Country: US (occurrence: US)
  Receive Date: 20210302
  Receipt Date: 20210302
  Transmission Date: 20210420
  Serious: No
  Sender: FDA-Public Use
  Company Number: None

PATIENT
  Age: 50 Year
  Sex: Male

DRUGS (35)
  1. DILTAZEM [Concomitant]
  2. FLUOURACIL [Concomitant]
     Active Substance: FLUOROURACIL
  3. POLYETH GLYC [Concomitant]
     Active Substance: POLYETHYLENE GLYCOLS
  4. PREDISONE [Concomitant]
     Active Substance: PREDNISONE
  5. TACROLIMUS. [Concomitant]
     Active Substance: TACROLIMUS
  6. TOBI [Concomitant]
     Active Substance: TOBRAMYCIN
  7. TOBRAMYCIN. [Suspect]
     Active Substance: TOBRAMYCIN
     Indication: CYSTIC FIBROSIS
     Dosage: ?          OTHER ROUTE:INHALE?
     Dates: start: 20210204
  8. ACYCLOVIR. [Concomitant]
     Active Substance: ACYCLOVIR
  9. AZITHROMYCIN ANHYDROUS. [Concomitant]
     Active Substance: AZITHROMYCIN ANHYDROUS
  10. ALLOPURINOL. [Concomitant]
     Active Substance: ALLOPURINOL
  11. CLONIDINE. [Concomitant]
     Active Substance: CLONIDINE
  12. DOK [Concomitant]
     Active Substance: DOCUSATE SODIUM
  13. HYDRALAZINE [Concomitant]
     Active Substance: HYDRALAZINE HYDROCHLORIDE
  14. SIMVASTIATIN [Concomitant]
  15. VIOS PRO LC_MIS SYSTEM [Concomitant]
  16. COMP AIR [Concomitant]
  17. FENOFIBRATE. [Concomitant]
     Active Substance: FENOFIBRATE
  18. OYSTER SHELL [Concomitant]
     Active Substance: OSTREA EDULIS SHELL
  19. POSACONAZOLE [Concomitant]
     Active Substance: POSACONAZOLE
  20. ZENPEP [Concomitant]
     Active Substance: PANCRELIPASE AMYLASE\PANCRELIPASE LIPASE\PANCRELIPASE PROTEASE
  21. CAYSTON [Concomitant]
     Active Substance: AZTREONAM
  22. DAPSONE. [Concomitant]
     Active Substance: DAPSONE
  23. FURSOMIDE [Concomitant]
  24. CITALOPRAM [Concomitant]
     Active Substance: CITALOPRAM HYDROBROMIDE
  25. ESCITALOPRAM [Concomitant]
     Active Substance: ESCITALOPRAM OXALATE
  26. METOPOL [Concomitant]
  27. FLOVENT [Concomitant]
     Active Substance: FLUTICASONE PROPIONATE
  28. FLUTICASONE. [Concomitant]
     Active Substance: FLUTICASONE
  29. MAG OXIDE [Concomitant]
     Active Substance: MAGNESIUM OXIDE
  30. OMPERAZOLE [Concomitant]
     Active Substance: OMEPRAZOLE
  31. ACITRETIN. [Concomitant]
     Active Substance: ACITRETIN
  32. ATOVAQUONE. [Concomitant]
     Active Substance: ATOVAQUONE
  33. ITRACONAZOLE. [Concomitant]
     Active Substance: ITRACONAZOLE
  34. MONTELUKAST [Concomitant]
     Active Substance: MONTELUKAST SODIUM
  35. TOBRAYCIN [Concomitant]

REACTIONS (1)
  - Pulmonary oedema [None]

NARRATIVE: CASE EVENT DATE: 20210301
